FAERS Safety Report 15553339 (Version 1)
Quarter: 2018Q4

REPORT INFORMATION
  Report Type: Spontaneous
  Country: FR (occurrence: FR)
  Receive Date: 20181026
  Receipt Date: 20181026
  Transmission Date: 20190205
  Serious: Yes (Hospitalization)
  Sender: FDA-Public Use
  Company Number: FR-SUN PHARMACEUTICAL INDUSTRIES LTD-2018RR-189310

PATIENT
  Age: 42 Year
  Sex: Male
  Weight: 106 kg

DRUGS (9)
  1. PARACETAMOL [Suspect]
     Active Substance: ACETAMINOPHEN
     Indication: SUICIDE ATTEMPT
     Dosage: DSI NON CONNUE ()
     Route: 048
  2. SERESTA [Suspect]
     Active Substance: OXAZEPAM
     Indication: SUICIDE ATTEMPT
     Dosage: DSI NON CONNUE ()
     Route: 048
  3. METHCATHINONE [Suspect]
     Active Substance: METHCATHINONE
     Indication: SUBSTANCE USE
     Dosage: NON CONNUE ()
     Route: 042
     Dates: start: 20180811, end: 20180813
  4. PYOSTACINE [Suspect]
     Active Substance: PRISTINAMYCIN
     Indication: SUICIDE ATTEMPT
     Dosage: DSI NON CONNUE ()
     Route: 048
  5. PREGABALINE [Suspect]
     Active Substance: PREGABALIN
     Indication: SUICIDE ATTEMPT
     Dosage: DSI NON CONNUE ()
     Route: 048
  6. THERALENE [Suspect]
     Active Substance: TRIMEPRAZINE
     Indication: SUICIDE ATTEMPT
     Dosage: IN TOTAL
     Route: 048
  7. TOPALGIC (SUPROFEN) [Suspect]
     Active Substance: SUPROFEN
     Indication: SUICIDE ATTEMPT
     Dosage: DSI INCONNUE ()
     Route: 048
  8. IXPRIM [Suspect]
     Active Substance: ACETAMINOPHEN\TRAMADOL HYDROCHLORIDE
     Indication: SUICIDE ATTEMPT
     Dosage: DSI INCONNUE ()
     Route: 048
  9. VALIUM [Suspect]
     Active Substance: DIAZEPAM
     Indication: SUICIDE ATTEMPT
     Dosage: DSI INCONNUE ()
     Route: 048

REACTIONS (4)
  - Rhabdomyolysis [Recovered/Resolved]
  - Toxicity to various agents [Recovered/Resolved]
  - Poisoning deliberate [Recovered/Resolved]
  - Acute kidney injury [Recovered/Resolved]

NARRATIVE: CASE EVENT DATE: 20180811
